FAERS Safety Report 4595886-4 (Version None)
Quarter: 2005Q1

REPORT INFORMATION
  Report Type: 
  Country: None (occurrence: None)
  Receive Date: 20050224
  Receipt Date: 20050224
  Transmission Date: 20050727
  Serious: Yes (Hospitalization)
  Sender: FDA-Public Use
  Company Number: None

PATIENT
  Sex: Male

DRUGS (9)
  1. CHLORDIAZEPOXIDE [Suspect]
     Indication: ALCOHOL WITHDRAWAL SYNDROME
     Dosage: 25 MG   QID ORAL
     Route: 048
  2. MORPHINE [Concomitant]
  3. APAP TAB [Concomitant]
  4. LORAZEPAM [Concomitant]
  5. LEVOTHYROXINE [Concomitant]
  6. ATENOLOL [Concomitant]
  7. ALUMINUM HYDROXIDE AND MAGNESIUM TRISILICATE [Concomitant]
  8. GATIFLOXACIN [Concomitant]
  9. ENOXAPARIN [Concomitant]

REACTIONS (1)
  - MENTAL STATUS CHANGES [None]
